FAERS Safety Report 5340013-9 (Version None)
Quarter: 2007Q2

REPORT INFORMATION
  Report Type: 
  Country: None (occurrence: None)
  Receive Date: 20070405
  Receipt Date: 20061101
  Transmission Date: 20071010
  Serious: No
  Sender: FDA-Public Use
  Company Number: US200611000547

PATIENT
  Sex: Male

DRUGS (3)
  1. CYMBALTA [Suspect]
     Indication: ANXIETY
     Dosage: 30 MG, DAILY (1/D), ORAL
     Route: 048
     Dates: start: 20061027, end: 20061101
  2. BENICAR /USA/ (OLMESARTAN MEDOXOMIL) [Concomitant]
  3. ACIPHEX [Concomitant]

REACTIONS (4)
  - BLOOD PRESSURE DECREASED [None]
  - BURNING SENSATION [None]
  - DEPRESSED MOOD [None]
  - NECK PAIN [None]
